FAERS Safety Report 4506014-5 (Version None)
Quarter: 2004Q4

REPORT INFORMATION
  Report Type: 
  Country: None (occurrence: None)
  Receive Date: 20041025
  Receipt Date: 20031210
  Transmission Date: 20050328
  Serious: Yes (Hospitalization, Other)
  Sender: FDA-Public Use
  Company Number: US-JNJFOC-20030905206

PATIENT
  Sex: Female

DRUGS (1)
  1. REMICADE [Suspect]
     Indication: TEMPORAL ARTERITIS
     Dosage: INTRAVENOUS
     Route: 042

REACTIONS (2)
  - CELLULITIS [None]
  - OEDEMA [None]
